FAERS Safety Report 10029873 (Version 1)
Quarter: 2014Q1

REPORT INFORMATION
  Report Type: Spontaneous
  Country: TH (occurrence: None)
  Receive Date: 20140319
  Receipt Date: 20140319
  Transmission Date: 20141002
  Serious: Yes (Other)
  Sender: FDA-Public Use
  Company Number: TH-IGSA-GBI1594

PATIENT
  Sex: Male

DRUGS (3)
  1. ALPHANINE SD [Suspect]
     Indication: FACTOR IX DEFICIENCY
     Route: 042
  2. FACTOR II [Suspect]
  3. RITUXIMAB [Concomitant]

REACTIONS (1)
  - Anaphylactic reaction [None]
